FAERS Safety Report 8487791-8 (Version None)
Quarter: 2012Q3

REPORT INFORMATION
  Report Type: 
  Country: None (occurrence: None)
  Receive Date: 20120705
  Receipt Date: 20120702
  Transmission Date: 20120928
  Serious: Yes (Hospitalization)
  Sender: FDA-Public Use
  Company Number: JP-PFIZER INC-2012111280

PATIENT
  Age: 31 Year
  Sex: Male

DRUGS (3)
  1. LULLAN [Suspect]
     Dosage: 16 MG/DAY
     Route: 048
     Dates: start: 20110728
  2. MEILAX [Suspect]
     Dosage: 16 MG/DAY
     Route: 048
     Dates: start: 20110623
  3. ZOLOFT [Suspect]
     Dosage: 75 MG/DAY
     Route: 048
     Dates: start: 20110707

REACTIONS (1)
  - ALTERED STATE OF CONSCIOUSNESS [None]
